FAERS Safety Report 6759995-3 (Version None)
Quarter: 2010Q2

REPORT INFORMATION
  Report Type: 
  Country: None (occurrence: None)
  Receive Date: 20100604
  Receipt Date: 20100519
  Transmission Date: 20101027
  Serious: Yes (Other)
  Sender: FDA-Public Use
  Company Number: US-1181954

PATIENT
  Age: 10 Year
  Sex: Male

DRUGS (1)
  1. AZOPT [Suspect]
     Dosage: OPHTHALMIC
     Route: 047

REACTIONS (1)
  - DRUG INEFFECTIVE [None]
